FAERS Safety Report 15682762 (Version 2)
Quarter: 2018Q4

REPORT INFORMATION
  Report Type: Spontaneous
  Country: FR (occurrence: FR)
  Receive Date: 20181203
  Receipt Date: 20181221
  Transmission Date: 20190205
  Serious: Yes (Hospitalization)
  Sender: FDA-Public Use
  Company Number: FR-ASTRAZENECA-2017SE68656

PATIENT
  Age: 18513 Day
  Sex: Male
  Weight: 56 kg

DRUGS (7)
  1. NIMOTOP [Suspect]
     Active Substance: NIMODIPINE
     Indication: REVERSIBLE ISCHAEMIC NEUROLOGICAL DEFICIT
     Dosage: 10MG/50ML; 2 MG PER HOUR
     Route: 041
     Dates: start: 20170606, end: 20170608
  2. INEXIUM [Suspect]
     Active Substance: ESOMEPRAZOLE
     Indication: PRODUCT USED FOR UNKNOWN INDICATION
     Route: 048
     Dates: start: 20170608, end: 20170612
  3. AMOXICILLINE/CLAVULANIC ACID SANDOZ [Suspect]
     Active Substance: AMOXICILLIN\CLAVULANIC ACID
     Indication: PNEUMONIA ASPIRATION
     Dosage: SANDOZ, 2G/200 MG; 3 DF EVERY DAY
     Route: 042
     Dates: start: 20170609, end: 20170609
  4. KETOPROFEN. [Suspect]
     Active Substance: KETOPROFEN
     Indication: HEADACHE
     Route: 042
     Dates: start: 20170607, end: 20170611
  5. VISIPAQUE [Suspect]
     Active Substance: IODIXANOL
     Indication: ANGIOGRAM
     Dosage: 1.0DF ONCE/SINGLE ADMINISTRATION
     Route: 065
     Dates: start: 20170606, end: 20170606
  6. AMOXICILLINE/CLAVULANIC ACID SANDOZ [Suspect]
     Active Substance: AMOXICILLIN\CLAVULANIC ACID
     Indication: LUNG DISORDER
     Dosage: SANDOZ, 2G/200 MG; 3 DF EVERY DAY
     Route: 042
     Dates: start: 20170609, end: 20170609
  7. IOMERON [Suspect]
     Active Substance: IOMEPROL
     Indication: SCAN
     Dosage: SOLUTION INJECTABLE, 2 INJECTION
     Route: 042
     Dates: start: 20170606, end: 20170609

REACTIONS (1)
  - Acute generalised exanthematous pustulosis [Recovered/Resolved]

NARRATIVE: CASE EVENT DATE: 20170609
